FAERS Safety Report 23270549 (Version 1)
Quarter: 2023Q4

REPORT INFORMATION
  Report Type: Spontaneous
  Country: DE (occurrence: DE)
  Receive Date: 20231207
  Receipt Date: 20231207
  Transmission Date: 20240109
  Serious: Yes (Hospitalization)
  Sender: FDA-Public Use
  Company Number: DE-JNJFOC-20231205572

PATIENT
  Age: 67 Year
  Sex: Female

DRUGS (2)
  1. REMICADE [Suspect]
     Active Substance: INFLIXIMAB
     Indication: Sarcoidosis
     Dosage: FIRST DOSE
     Route: 041
     Dates: start: 20231012
  2. REMICADE [Suspect]
     Active Substance: INFLIXIMAB
     Dosage: SECOND DOSE
     Route: 041
     Dates: start: 20231024

REACTIONS (6)
  - Fluid retention [Unknown]
  - Electrolyte imbalance [Unknown]
  - C-reactive protein increased [Unknown]
  - White blood cell count decreased [Unknown]
  - Haemoglobin decreased [Unknown]
  - Off label use [Unknown]

NARRATIVE: CASE EVENT DATE: 20230101
